FAERS Safety Report 4361254-3 (Version None)
Quarter: 2004Q2

REPORT INFORMATION
  Report Type: 
  Country: None (occurrence: None)
  Receive Date: 20040520
  Receipt Date: 20040108
  Transmission Date: 20050107
  Serious: Yes (Death, Other)
  Sender: FDA-Public Use
  Company Number: PHBS2004BE00679

PATIENT
  Age: 82 Year
  Sex: Female

DRUGS (2)
  1. ZOMETA [Suspect]
     Indication: BREAST CANCER
     Dosage: 4 MG/D
     Dates: start: 20021201, end: 20030501
  2. AREDIA [Suspect]
     Indication: BREAST CANCER
     Dosage: 90 MG, QMO
     Dates: start: 20020307, end: 20021101

REACTIONS (5)
  - BLOOD CREATININE INCREASED [None]
  - BREAST CANCER FEMALE [None]
  - MALIGNANT NEOPLASM PROGRESSION [None]
  - NEPHRITIS INTERSTITIAL [None]
  - PERITONEAL CARCINOMA [None]
